FAERS Safety Report 5913332-2 (Version None)
Quarter: 2008Q4

REPORT INFORMATION
  Report Type: 
  Country: None (occurrence: None)
  Receive Date: 20081009
  Receipt Date: 20080929
  Transmission Date: 20090506
  Serious: Yes (Hospitalization)
  Sender: FDA-Public Use
  Company Number: PHNU2008DE01248

PATIENT
  Sex: Male

DRUGS (8)
  1. ZOMETA [Suspect]
     Indication: OSTEOPOROSIS
     Dosage: 4 MG EVERY 4 WEEKS
     Route: 042
     Dates: start: 20060101, end: 20080229
  2. ZOMETA [Suspect]
     Dosage: EVERY 3 MONTHS
  3. MARCUMAR [Concomitant]
  4. ZOLADEX [Concomitant]
     Dosage: EVERY 3 MONTH DEPOT INJECTION
  5. COVERSUM [Concomitant]
  6. METOPROLOL SUCCINATE [Concomitant]
  7. CALCIUM [Concomitant]
  8. PANTOZOL [Concomitant]

REACTIONS (3)
  - CHEST PAIN [None]
  - INJECTION SITE PAIN [None]
  - PULMONARY EMBOLISM [None]
